FAERS Safety Report 5599564-4 (Version None)
Quarter: 2008Q1

REPORT INFORMATION
  Report Type: 
  Country: None (occurrence: None)
  Receive Date: 20080123
  Receipt Date: 20080114
  Transmission Date: 20080703
  Serious: Yes (Hospitalization)
  Sender: FDA-Public Use
  Company Number: PHHO2003US14264

PATIENT
  Age: 77 Year
  Sex: Female
  Weight: 67 kg

DRUGS (9)
  1. NATEGLINIDE [Suspect]
     Indication: GLUCOSE TOLERANCE IMPAIRED
     Dosage: LEVEL 1
     Route: 048
     Dates: start: 20030722
  2. NATEGLINIDE [Suspect]
     Dosage: LEVEL 2
     Route: 048
     Dates: end: 20031103
  3. VALSARTAN [Suspect]
     Indication: CARDIOVASCULAR DISORDER
     Dosage: LEVEL 2
     Dates: end: 20031101
  4. VALSARTAN [Suspect]
     Dosage: LEVEL 1
     Route: 048
     Dates: start: 20031102, end: 20031103
  5. VALSARTAN [Suspect]
     Dosage: LEVEL 1
     Route: 048
     Dates: start: 20030722
  6. NORVASC [Concomitant]
     Indication: HYPERTENSION
     Dosage: 10 MG, QD
     Route: 048
     Dates: start: 20020103, end: 20031103
  7. LIPITOR [Concomitant]
     Indication: HYPERLIPIDAEMIA
     Dosage: 40 MG, QD
     Route: 048
     Dates: start: 20020918, end: 20031103
  8. HYDROCHLOROTHIAZIDE [Suspect]
  9. LASIX [Suspect]

REACTIONS (15)
  - ASTHENIA [None]
  - COORDINATION ABNORMAL [None]
  - DIPLOPIA [None]
  - DIZZINESS [None]
  - GUILLAIN-BARRE SYNDROME [None]
  - HYPONATRAEMIA [None]
  - HYPOTENSION [None]
  - HYPOVOLAEMIA [None]
  - LIVER FUNCTION TEST ABNORMAL [None]
  - METABOLIC ALKALOSIS [None]
  - MITRAL VALVE INCOMPETENCE [None]
  - OPHTHALMOPLEGIA [None]
  - PLEURAL EFFUSION [None]
  - SENSORY LOSS [None]
  - TRICUSPID VALVE INCOMPETENCE [None]
